FAERS Safety Report 11270775 (Version 1)
Quarter: 2015Q3

REPORT INFORMATION
  Report Type: Spontaneous
  Country: US (occurrence: US)
  Receive Date: 20150714
  Receipt Date: 20150714
  Transmission Date: 20151125
  Serious: Yes (Hospitalization)
  Sender: FDA-Public Use
  Company Number: US-BAUSCH-BL-2015-017168

PATIENT
  Age: 72 Year
  Sex: Male

DRUGS (2)
  1. XENAZINE [Suspect]
     Active Substance: TETRABENAZINE
     Indication: BONE CANCER
  2. XENAZINE [Suspect]
     Active Substance: TETRABENAZINE
     Indication: NEOPLASM MALIGNANT
     Route: 048
     Dates: start: 20130626

REACTIONS (2)
  - Off label use [Not Recovered/Not Resolved]
  - Gastrostomy tube site complication [Recovered/Resolved]

NARRATIVE: CASE EVENT DATE: 20130626
